FAERS Safety Report 12189392 (Version 2)
Quarter: 2018Q1

REPORT INFORMATION
  Report Type: Report from Study
  Country: CA (occurrence: CA)
  Receive Date: 20160317
  Receipt Date: 20180311
  Transmission Date: 20180508
  Serious: Yes (Other)
  Sender: FDA-Public Use
  Company Number: PHHY2016CA033442

PATIENT
  Sex: Female

DRUGS (1)
  1. GILENYA [Suspect]
     Active Substance: FINGOLIMOD HYDROCHLORIDE
     Indication: MULTIPLE SCLEROSIS
     Dosage: UNK
     Route: 048
     Dates: start: 20151222, end: 20180117

REACTIONS (5)
  - Intraocular pressure increased [Unknown]
  - Vitreous detachment [Unknown]
  - Therapeutic response decreased [Unknown]
  - Vitreous floaters [Unknown]
  - Vision blurred [Unknown]
